FAERS Safety Report 9386950 (Version 2)
Quarter: 2013Q3

REPORT INFORMATION
  Report Type: Spontaneous
  Country: US (occurrence: US)
  Receive Date: 20130708
  Receipt Date: 20130710
  Transmission Date: 20140515
  Serious: Yes (Disabling)
  Sender: FDA-Public Use
  Company Number: US-JNJFOC-20130615673

PATIENT
  Sex: Female

DRUGS (5)
  1. REMICADE [Suspect]
     Indication: CROHN^S DISEASE
     Dosage: TOTAL 118 INFUSIONS WITHIN LAST 12 YEARS
     Route: 042
  2. REMICADE [Suspect]
     Indication: CROHN^S DISEASE
     Dosage: LAST INFLIXIMAB DOSE
     Route: 042
     Dates: start: 20130416
  3. BENADRYL [Concomitant]
     Indication: PREMEDICATION
     Route: 048
  4. PREDNISONE [Concomitant]
     Indication: PREMEDICATION
     Route: 065
  5. SOLU-MEDROL [Concomitant]
     Indication: PREMEDICATION
     Route: 065

REACTIONS (15)
  - Joint swelling [Not Recovered/Not Resolved]
  - Serum sickness [Not Recovered/Not Resolved]
  - Dysphonia [Not Recovered/Not Resolved]
  - Arthritis [Unknown]
  - Weight increased [Unknown]
  - Rash [Unknown]
  - Ocular hyperaemia [Unknown]
  - Swelling [Not Recovered/Not Resolved]
  - Spinal pain [Not Recovered/Not Resolved]
  - Erythema [Not Recovered/Not Resolved]
  - Drug effect decreased [Not Recovered/Not Resolved]
  - Skin warm [Not Recovered/Not Resolved]
  - Urinary incontinence [Not Recovered/Not Resolved]
  - Muscle spasms [Not Recovered/Not Resolved]
  - Polyuria [Not Recovered/Not Resolved]
